FAERS Safety Report 6292075-2 (Version None)
Quarter: 2009Q3

REPORT INFORMATION
  Report Type: 
  Country: None (occurrence: None)
  Receive Date: 20090731
  Receipt Date: 20090722
  Transmission Date: 20100115
  Serious: Yes (Hospitalization)
  Sender: FDA-Public Use
  Company Number: US-BIOGENIDEC-2009BI023002

PATIENT
  Age: 25 Year
  Sex: Female

DRUGS (3)
  1. AVONEX [Suspect]
     Indication: MULTIPLE SCLEROSIS
     Route: 030
     Dates: start: 20090301
  2. AVONEX [Suspect]
     Route: 030
     Dates: start: 20010601, end: 20020101
  3. AVONEX [Suspect]
     Route: 030
     Dates: start: 20061204

REACTIONS (4)
  - BACK PAIN [None]
  - INSOMNIA [None]
  - MULTIPLE SCLEROSIS RELAPSE [None]
  - PAIN IN EXTREMITY [None]
